FAERS Safety Report 5982360-3 (Version None)
Quarter: 2008Q4

REPORT INFORMATION
  Report Type: 
  Country: None (occurrence: None)
  Receive Date: 20081208
  Receipt Date: 20081202
  Transmission Date: 20090506
  Serious: Yes (Hospitalization)
  Sender: FDA-Public Use
  Company Number: US-BIOGENIDEC-2008BI028369

PATIENT
  Age: 39 Year
  Sex: Female

DRUGS (3)
  1. TYSABRI [Suspect]
     Indication: MULTIPLE SCLEROSIS
     Route: 042
     Dates: start: 20080702
  2. NORTRIPTYLINE HCL [Concomitant]
  3. TRAMADOL HCL [Concomitant]

REACTIONS (3)
  - HEADACHE [None]
  - PYREXIA [None]
  - VISUAL IMPAIRMENT [None]
